FAERS Safety Report 8070061-X (Version None)
Quarter: 2012Q1

REPORT INFORMATION
  Report Type: 
  Country: None (occurrence: None)
  Receive Date: 20120119
  Receipt Date: 20120109
  Transmission Date: 20120608
  Serious: Yes (Disabling, Other)
  Sender: FDA-Public Use
  Company Number: DSU-2012-00190

PATIENT
  Age: 52 Year
  Sex: Female
  Weight: 63.5036 kg

DRUGS (3)
  1. LORTAB (PARACETAMOL, HYDROCODONE BITARTRATE) (PARACETAMOL, HYDROCODONE [Concomitant]
  2. AMBIEN [Concomitant]
  3. BENICAR [Suspect]
     Indication: HYPERTENSION
     Dosage: 20 MG (20 MG, QD), PER ORAL
     Route: 048
     Dates: start: 20030101

REACTIONS (4)
  - PELVIC INFLAMMATORY DISEASE [None]
  - WEIGHT INCREASED [None]
  - NEPHROLITHIASIS [None]
  - PELVIC PAIN [None]
